FAERS Safety Report 10153129 (Version 3)
Quarter: 2014Q2

REPORT INFORMATION
  Report Type: Spontaneous
  Country: US (occurrence: US)
  Receive Date: 20140505
  Receipt Date: 20140602
  Transmission Date: 20141212
  Serious: Yes (Other)
  Sender: FDA-Public Use
  Company Number: US-GILEAD-2014-0101112

PATIENT
  Sex: Male

DRUGS (5)
  1. LETAIRIS [Suspect]
     Indication: PRODUCT USED FOR UNKNOWN INDICATION
     Dosage: 10 MG, QD
     Route: 065
     Dates: start: 20140317
  2. REMODULIN [Suspect]
     Indication: PRODUCT USED FOR UNKNOWN INDICATION
     Dosage: UNK
     Route: 065
  3. REMODULIN [Suspect]
     Dosage: UNK
     Route: 042
  4. REVATIO [Concomitant]
  5. REMODULIN [Concomitant]

REACTIONS (10)
  - Cellulitis [Unknown]
  - Dysgeusia [Unknown]
  - Infusion site haemorrhage [Unknown]
  - Infusion site erythema [Not Recovered/Not Resolved]
  - Infusion site swelling [Not Recovered/Not Resolved]
  - Infusion site extravasation [Unknown]
  - Unevaluable event [Unknown]
  - Infusion site pain [Unknown]
  - Infusion site infection [Unknown]
  - Dyspnoea [Recovered/Resolved]
